FAERS Safety Report 9780741 (Version 1)
Quarter: 2013Q4

REPORT INFORMATION
  Report Type: Spontaneous
  Country: US (occurrence: US)
  Receive Date: 20131224
  Receipt Date: 20131224
  Transmission Date: 20140711
  Serious: No
  Sender: FDA-Public Use
  Company Number: US-SA-2013SA133750

PATIENT
  Sex: Male

DRUGS (2)
  1. LANTUS SOLOSTAR [Suspect]
     Dosage: DOSE:76 UNIT(S)
     Route: 051
  2. SOLOSTAR [Concomitant]

REACTIONS (3)
  - Eye disorder [Unknown]
  - Visual acuity reduced [Unknown]
  - Incorrect product storage [Unknown]
